FAERS Safety Report 5815059-4 (Version None)
Quarter: 2008Q3

REPORT INFORMATION
  Report Type: 
  Country: None (occurrence: None)
  Receive Date: 20080718
  Receipt Date: 20080710
  Transmission Date: 20090109
  Serious: Yes (Other)
  Sender: FDA-Public Use
  Company Number: D0058038A

PATIENT
  Age: 74 Year
  Sex: Male

DRUGS (1)
  1. TAGONIS [Suspect]
     Dosage: 20MG UNKNOWN
     Route: 048

REACTIONS (4)
  - FATIGUE [None]
  - ROAD TRAFFIC ACCIDENT [None]
  - SYNCOPE [None]
  - SYNCOPE VASOVAGAL [None]
